FAERS Safety Report 16872168 (Version 1)
Quarter: 2019Q4

REPORT INFORMATION
  Report Type: Spontaneous
  Country: US (occurrence: US)
  Receive Date: 20191001
  Receipt Date: 20191001
  Transmission Date: 20200122
  Serious: No
  Sender: FDA-Public Use
  Company Number: US-ALLERGAN-1932891US

PATIENT

DRUGS (3)
  1. VRAYLAR [Interacting]
     Active Substance: CARIPRAZINE
     Indication: BIPOLAR DISORDER
  2. VRAYLAR [Suspect]
     Active Substance: CARIPRAZINE
     Indication: AKATHISIA
     Dosage: 1.5 MG, SINGLE
  3. RISPERIDONE. [Interacting]
     Active Substance: RISPERIDONE
     Indication: PRODUCT USED FOR UNKNOWN INDICATION
     Dosage: UNK
     Route: 065

REACTIONS (2)
  - Off label use [Unknown]
  - Drug interaction [Unknown]
